FAERS Safety Report 5573678-7 (Version None)
Quarter: 2007Q4

REPORT INFORMATION
  Report Type: 
  Country: None (occurrence: None)
  Receive Date: 20071226
  Receipt Date: 20071214
  Transmission Date: 20080405
  Serious: Yes (Hospitalization)
  Sender: FDA-Public Use
  Company Number: FR-AMGEN-US257652

PATIENT
  Sex: Female

DRUGS (4)
  1. ENBREL [Suspect]
     Indication: ANKYLOSING SPONDYLITIS
     Route: 058
     Dates: start: 20040101, end: 20060201
  2. PREDNISONE [Concomitant]
     Dosage: UNKNOWN
  3. MAGNESIUM [Concomitant]
     Dosage: UNKNOWN
  4. LACTOSE [Concomitant]
     Dosage: UNKNOWN

REACTIONS (1)
  - PULMONARY GRANULOMA [None]
